FAERS Safety Report 24415066 (Version 1)
Quarter: 2024Q4

REPORT INFORMATION
  Report Type: Spontaneous
  Country: PT (occurrence: PT)
  Receive Date: 20241009
  Receipt Date: 20241009
  Transmission Date: 20250115
  Serious: Yes (Other)
  Sender: HIKMA
  Company Number: PT-HIKMA PHARMACEUTICALS USA INC.-PT-H14001-24-08970

PATIENT
  Age: 42 Year
  Sex: Female

DRUGS (1)
  1. LEVOFLOXACIN SODIUM [Suspect]
     Active Substance: LEVOFLOXACIN SODIUM
     Indication: Product used for unknown indication
     Dosage: 500 MILLIGRAM, QD
     Route: 042
     Dates: start: 20240502, end: 20240502

REACTIONS (2)
  - Mechanical urticaria [Recovered/Resolved]
  - Erythema [Recovered/Resolved]

NARRATIVE: CASE EVENT DATE: 20240502
